FAERS Safety Report 4425460-1 (Version None)
Quarter: 2004Q3

REPORT INFORMATION
  Report Type: 
  Country: None (occurrence: None)
  Receive Date: 20040813
  Receipt Date: 20040805
  Transmission Date: 20050211
  Serious: Yes (Hospitalization)
  Sender: FDA-Public Use
  Company Number: US-ROCHE-376924

PATIENT
  Sex: Male

DRUGS (4)
  1. PEGASYS [Suspect]
     Route: 065
     Dates: start: 20030915, end: 20040615
  2. PEGASYS [Suspect]
     Route: 065
     Dates: end: 20040715
  3. COPEGUS [Suspect]
     Route: 065
     Dates: start: 20030915, end: 20040615
  4. COPEGUS [Suspect]
     Route: 065
     Dates: end: 20040715

REACTIONS (4)
  - ABDOMINAL PAIN [None]
  - DIVERTICULITIS [None]
  - DRUG INEFFECTIVE [None]
  - PANCREATITIS [None]
